FAERS Safety Report 14936025 (Version 1)
Quarter: 2018Q2

REPORT INFORMATION
  Report Type: Spontaneous
  Country: CA (occurrence: CA)
  Receive Date: 20180524
  Receipt Date: 20180524
  Transmission Date: 20180711
  Serious: Yes (Other)
  Sender: FDA-Public Use
  Company Number: CA-BAUSCH-BL-2018-014867

PATIENT
  Age: 77 Year
  Sex: Male
  Weight: 93 kg

DRUGS (1)
  1. WELLBUTRIN XL [Suspect]
     Active Substance: BUPROPION HYDROCHLORIDE
     Indication: DEPRESSION
     Dosage: EXTENDED- RELEASE
     Route: 048

REACTIONS (2)
  - Cholestasis [Recovered/Resolved]
  - Hepatic enzyme increased [Recovered/Resolved]
